FAERS Safety Report 21110425 (Version 1)
Quarter: 2022Q3

REPORT INFORMATION
  Report Type: Other
  Country: US (occurrence: None)
  Receive Date: 20220721
  Receipt Date: 20220721
  Transmission Date: 20221027
  Serious: Yes (Other)
  Sender: FDA-Public Use
  Company Number: US-ROCHE-3142080

PATIENT

DRUGS (4)
  1. TRASTUZUMAB [Suspect]
     Active Substance: TRASTUZUMAB
     Indication: Hormone receptor positive breast cancer
     Dosage: 160 MG
     Route: 041
  2. GEDATOLISIB [Suspect]
     Active Substance: GEDATOLISIB
     Indication: Hormone receptor positive breast cancer
     Route: 065
  3. DACTOLISIB [Suspect]
     Active Substance: DACTOLISIB
     Indication: Hormone receptor positive breast cancer
     Route: 065
  4. BIMIRALISIB [Suspect]
     Active Substance: BIMIRALISIB
     Indication: Hormone receptor positive breast cancer
     Route: 065

REACTIONS (1)
  - Mania [Unknown]
